FAERS Safety Report 4485667-4 (Version None)
Quarter: 2004Q4

REPORT INFORMATION
  Report Type: 
  Country: None (occurrence: None)
  Receive Date: 20041026
  Receipt Date: 20041020
  Transmission Date: 20050328
  Serious: Yes (Life-Threatening, Hospitalization)
  Sender: FDA-Public Use
  Company Number: US-MERCK-0410USA03207

PATIENT
  Sex: Female

DRUGS (11)
  1. VIOXX [Suspect]
     Indication: OSTEOPOROSIS
     Route: 048
  2. VIOXX [Suspect]
     Indication: OSTEOARTHRITIS
     Route: 048
  3. [THERAPY UNSPECIFIED] [Concomitant]
     Route: 065
  4. VALIUM [Concomitant]
     Route: 065
  5. PROTONIX [Concomitant]
     Route: 065
  6. DETROL [Concomitant]
     Route: 065
  7. CELEXA [Concomitant]
     Route: 065
  8. AMITRIPTYLINE HYDROCHLORIDE [Concomitant]
     Route: 065
  9. AMBIEN [Concomitant]
     Route: 065
  10. PREMARIN [Concomitant]
     Route: 065
  11. NEURONTIN [Concomitant]
     Route: 065

REACTIONS (1)
  - ANGINA PECTORIS [None]
